FAERS Safety Report 9934367 (Version 3)
Quarter: 2014Q2

REPORT INFORMATION
  Report Type: Report from Study
  Country: IL (occurrence: IL)
  Receive Date: 20140228
  Receipt Date: 20140409
  Transmission Date: 20141212
  Serious: Yes (Death, Hospitalization)
  Sender: FDA-Public Use
  Company Number: IL-ROCHE-1357327

PATIENT
  Sex: Female

DRUGS (6)
  1. RITUXIMAB [Suspect]
     Indication: CHRONIC LYMPHOCYTIC LEUKAEMIA
     Route: 042
  2. RITUXIMAB [Suspect]
     Indication: LYMPHOCYTIC LYMPHOMA
  3. BLINDED IBRUTINIB [Suspect]
     Indication: CHRONIC LYMPHOCYTIC LEUKAEMIA
     Route: 065
  4. BLINDED IBRUTINIB [Suspect]
     Indication: LYMPHOCYTIC LYMPHOMA
  5. BENDAMUSTINE [Suspect]
     Indication: CHRONIC LYMPHOCYTIC LEUKAEMIA
     Route: 065
  6. BENDAMUSTINE [Suspect]
     Indication: LYMPHOCYTIC LYMPHOMA

REACTIONS (1)
  - Progressive multifocal leukoencephalopathy [Fatal]
